FAERS Safety Report 25588381 (Version 2)
Quarter: 2025Q4

REPORT INFORMATION
  Report Type: Spontaneous
  Country: EU (occurrence: EU)
  Receive Date: 20250722
  Receipt Date: 20251114
  Transmission Date: 20260118
  Serious: Yes (Hospitalization, Other)
  Sender: MERCK SHARP & DOHME LLC
  Company Number: None

PATIENT
  Age: 52 Year
  Sex: Male
  Weight: 80 kg

DRUGS (5)
  1. KEYTRUDA [Suspect]
     Active Substance: PEMBROLIZUMAB
     Indication: Metastatic malignant melanoma
     Dosage: STRENGTH: 25 MG/ML
     Route: 042
     Dates: start: 20250204, end: 20250318
  2. TAFINLAR 75 mg, capsule [Concomitant]
     Indication: Metastatic malignant melanoma
     Route: 048
     Dates: start: 20250607, end: 20250608
  3. TAFINLAR 75 mg, capsule [Concomitant]
     Indication: Metastatic malignant melanoma
     Route: 048
     Dates: start: 20250416, end: 20250605
  4. MEKINIST 2 mg, film-coated tablet [Concomitant]
     Indication: Metastatic malignant melanoma
     Route: 048
     Dates: start: 20250607, end: 20250608
  5. MEKINIST 2 mg, film-coated tablet [Concomitant]
     Indication: Metastatic malignant melanoma
     Route: 048
     Dates: start: 20250416, end: 20250605

REACTIONS (3)
  - Hepatitis cholestatic [Recovering/Resolving]
  - Rash maculo-papular [Recovered/Resolved]
  - Immune-mediated cholangitis [Recovering/Resolving]

NARRATIVE: CASE EVENT DATE: 20250602
